FAERS Safety Report 7782173-6 (Version None)
Quarter: 2011Q3

REPORT INFORMATION
  Report Type: 
  Country: None (occurrence: None)
  Receive Date: 20110927
  Receipt Date: 20110921
  Transmission Date: 20111222
  Serious: Yes (Hospitalization)
  Sender: FDA-Public Use
  Company Number: FR-PFIZER INC-2011223848

PATIENT
  Age: 40 Year
  Sex: Female

DRUGS (5)
  1. TETRAZEPAM [Suspect]
     Dosage: UNKNOWN DOSAGE IN SINGLE INTAKE
     Route: 048
  2. NOCTAMID [Concomitant]
  3. MEPROBAMATE [Suspect]
     Dosage: UNKNOWN DOSAGE IN SINGLE INTAKE
     Route: 048
  4. XANAX [Suspect]
     Dosage: UNKNOWN DOSAGE IN SINGLE INTAKE
     Route: 048
  5. LEVOTHYROXINE SODIUM [Concomitant]
     Dosage: 100 UG

REACTIONS (3)
  - DRUG LEVEL INCREASED [None]
  - ALCOHOLISM [None]
  - SUICIDE ATTEMPT [None]
